FAERS Safety Report 7473652-X (Version None)
Quarter: 2011Q1

REPORT INFORMATION
  Report Type: 
  Country: None (occurrence: None)
  Receive Date: 20110302
  Receipt Date: 20101109
  Transmission Date: 20110831
  Serious: Yes (Other)
  Sender: FDA-Public Use
  Company Number: 163-21880-10070640

PATIENT
  Age: 79 Year
  Sex: Female

DRUGS (22)
  1. REVLIMID [Suspect]
  2. CEFTRIAXONE [Suspect]
     Indication: URINARY TRACT INFECTION
     Dates: start: 20100501
  3. AMOXICILLIN [Concomitant]
  4. COZAAR [Concomitant]
  5. LEVOTHYROXINE SODIUM [Concomitant]
  6. LUMIGAN [Concomitant]
  7. REVLIMID [Suspect]
  8. REVLIMID [Suspect]
  9. TIMOLOL MALEATE [Concomitant]
  10. VITAMIN D [Concomitant]
  11. REVLIMID [Suspect]
     Indication: MULTIPLE MYELOMA
     Dosage: 10 MG, 1 IN 1 D, PO; 5 MG, 1 IN 1 D, PO; 10 MG, 1 IN 1 D, PO
     Route: 048
     Dates: start: 20100426, end: 20100603
  12. REVLIMID [Suspect]
     Indication: MULTIPLE MYELOMA
     Dosage: 10 MG, 1 IN 1 D, PO; 5 MG, 1 IN 1 D, PO; 10 MG, 1 IN 1 D, PO
     Route: 048
     Dates: start: 20100712
  13. REVLIMID [Suspect]
     Indication: MULTIPLE MYELOMA
     Dosage: 10 MG, 1 IN 1 D, PO; 5 MG, 1 IN 1 D, PO; 10 MG, 1 IN 1 D, PO
     Route: 048
     Dates: start: 20100603, end: 20100712
  14. PREVACID [Concomitant]
  15. ZIAC [Concomitant]
  16. D-MANNOSE (D-MANNOSE) [Concomitant]
  17. PHENERGAN HCL [Concomitant]
  18. ACTOS [Concomitant]
  19. CYTOMEL [Concomitant]
  20. GLIPIZIDE [Concomitant]
  21. MULTIPLE VITAMINS (MULTIVITAMINS) [Concomitant]
  22. NIACIN [Concomitant]

REACTIONS (11)
  - ANAEMIA [None]
  - INFLUENZA LIKE ILLNESS [None]
  - OEDEMA PERIPHERAL [None]
  - CHILLS [None]
  - FATIGUE [None]
  - PRURITUS [None]
  - RASH [None]
  - DYSPNOEA [None]
  - LARYNGITIS [None]
  - RHINORRHOEA [None]
  - DIARRHOEA [None]
